FAERS Safety Report 12962208 (Version 1)
Quarter: 2016Q4

REPORT INFORMATION
  Report Type: Spontaneous
  Country: US (occurrence: US)
  Receive Date: 20161121
  Receipt Date: 20161121
  Transmission Date: 20170207
  Serious: No
  Sender: FDA-Public Use
  Company Number: US-NEPHRON PHARMACEUTICALS CORPORATION-1059882

PATIENT
  Age: 78 Year
  Sex: Female
  Weight: 59.09 kg

DRUGS (2)
  1. MUCOMYST [Concomitant]
     Active Substance: ACETYLCYSTEINE
     Route: 055
  2. IPRATROPIUM BROMIDE AND ALBUTEROL SULFATE [Suspect]
     Active Substance: ALBUTEROL SULFATE\IPRATROPIUM BROMIDE
     Indication: BRONCHIOLITIS
     Route: 055
     Dates: start: 20161116, end: 20161118

REACTIONS (2)
  - Dyspnoea [Recovered/Resolved]
  - Dizziness [Recovered/Resolved]

NARRATIVE: CASE EVENT DATE: 20161116
